FAERS Safety Report 8302797-7 (Version None)
Quarter: 2012Q2

REPORT INFORMATION
  Report Type: 
  Country: None (occurrence: None)
  Receive Date: 20120420
  Receipt Date: 20120415
  Transmission Date: 20120825
  Serious: No
  Sender: FDA-Public Use
  Company Number: US-BAYER-2012-038643

PATIENT

DRUGS (2)
  1. ALEVE (CAPLET) [Suspect]
  2. MUCINEX [Concomitant]

REACTIONS (2)
  - NO ADVERSE EVENT [None]
  - FEELING ABNORMAL [None]
